FAERS Safety Report 7597201-0 (Version None)
Quarter: 2011Q3

REPORT INFORMATION
  Report Type: 
  Country: None (occurrence: None)
  Receive Date: 20110708
  Receipt Date: 20100901
  Transmission Date: 20111222
  Serious: No
  Sender: FDA-Public Use
  Company Number: US-GLAXOSMITHKLINE-A0878951A

PATIENT
  Age: 6 Year
  Sex: Female

DRUGS (3)
  1. FLOVENT [Suspect]
     Indication: ASTHMA
     Dosage: 2PUFF TWICE PER DAY
     Route: 055
     Dates: start: 20080101
  2. ALBUTEROL SULFATE AUTOHALER [Concomitant]
  3. ZYRTEC [Concomitant]

REACTIONS (5)
  - PRODUCT QUALITY ISSUE [None]
  - DRUG INEFFECTIVE [None]
  - NASAL CONGESTION [None]
  - MALAISE [None]
  - DEVICE MISUSE [None]
